FAERS Safety Report 7406115-8 (Version None)
Quarter: 2011Q2

REPORT INFORMATION
  Report Type: 
  Country: None (occurrence: None)
  Receive Date: 20110405
  Receipt Date: 20110405
  Transmission Date: 20111010
  Serious: Yes (Other)
  Sender: FDA-Public Use
  Company Number: None

PATIENT
  Age: 62 Year
  Sex: Male
  Weight: 151.8 kg

DRUGS (1)
  1. XOPENEX HFA LEVABUTEROL TARTRATE INHALER [Suspect]
     Indication: CHRONIC OBSTRUCTIVE PULMONARY DISEASE
     Dosage: 45MCG/ACTUATION 2-4X AS NEEDED. NASAL INHALER
     Route: 055
     Dates: start: 20110301, end: 20110329

REACTIONS (1)
  - DEVICE MALFUNCTION [None]
